FAERS Safety Report 12742372 (Version 1)
Quarter: 2016Q3

REPORT INFORMATION
  Report Type: Spontaneous
  Country: US (occurrence: US)
  Receive Date: 20160914
  Receipt Date: 20160914
  Transmission Date: 20161109
  Serious: Yes (Other)
  Sender: FDA-Public Use
  Company Number: None

PATIENT
  Age: 63 Year
  Sex: Female
  Weight: 76.5 kg

DRUGS (22)
  1. FEXERIL [Concomitant]
  2. VITAMIN B12 [Concomitant]
     Active Substance: CYANOCOBALAMIN
  3. NIACIN. [Concomitant]
     Active Substance: NIACIN
  4. CALCIUM MAGNESIUM [Concomitant]
     Active Substance: CALCIUM\MAGNESIUM
  5. OMEGA 3 [Concomitant]
     Active Substance: OMEGA-3 FATTY ACIDS
  6. TYLENOL [Concomitant]
     Active Substance: ACETAMINOPHEN
  7. IMETREX [Concomitant]
  8. CHLORDIAZEPOXIDE. [Concomitant]
     Active Substance: CHLORDIAZEPOXIDE
  9. ISRADIPINE. [Concomitant]
     Active Substance: ISRADIPINE
  10. LORATADINE. [Concomitant]
     Active Substance: LORATADINE
  11. AZELASTINE [Concomitant]
     Active Substance: AZELASTINE
  12. ONE-A-DAY NOS [Concomitant]
     Active Substance: MINERALS\VITAMINS
  13. LEVAQUIN [Suspect]
     Active Substance: LEVOFLOXACIN
     Indication: SINUSITIS
     Route: 048
     Dates: start: 20160420, end: 20160425
  14. MSM [Concomitant]
     Active Substance: DIMETHYL SULFONE
  15. IBUPROFEN. [Concomitant]
     Active Substance: IBUPROFEN
  16. HYDROCHL-OROTHIAZIDE [Concomitant]
  17. VITAMIN D3 [Concomitant]
     Active Substance: CHOLECALCIFEROL
  18. ALEVE [Concomitant]
     Active Substance: NAPROXEN SODIUM
  19. ATENOLOL. [Concomitant]
     Active Substance: ATENOLOL
  20. CLOPIDOGREL BISULFATE. [Concomitant]
     Active Substance: CLOPIDOGREL BISULFATE
  21. TYLENOL WITH CODEINE [Concomitant]
     Active Substance: ACETAMINOPHEN\CODEINE PHOSPHATE
  22. ZINC [Concomitant]
     Active Substance: ZINC\ZINC CHLORIDE

REACTIONS (1)
  - Musculoskeletal disorder [None]

NARRATIVE: CASE EVENT DATE: 20160420
